FAERS Safety Report 9030268 (Version 3)
Quarter: 2020Q1

REPORT INFORMATION
  Report Type: Report from Study
  Country: CO (occurrence: CO)
  Receive Date: 20130122
  Receipt Date: 20200304
  Transmission Date: 20200409
  Serious: Yes (Hospitalization)
  Sender: FDA-Public Use
  Company Number: CO-ROCHE-1178618

PATIENT
  Sex: Female

DRUGS (1)
  1. ACTEMRA [Suspect]
     Active Substance: TOCILIZUMAB
     Indication: RHEUMATOID ARTHRITIS
     Route: 042
     Dates: start: 20121126

REACTIONS (6)
  - Erythema [Recovered/Resolved]
  - Arthritis infective [Recovered/Resolved]
  - Abscess limb [Recovered/Resolved]
  - Oedema peripheral [Recovered/Resolved]
  - Arthritis bacterial [Recovered/Resolved]
  - Joint swelling [Unknown]

NARRATIVE: CASE EVENT DATE: 20130109
